FAERS Safety Report 4292851-1 (Version None)
Quarter: 2004Q1

REPORT INFORMATION
  Report Type: 
  Country: None (occurrence: None)
  Receive Date: 20040210
  Receipt Date: 20040128
  Transmission Date: 20041129
  Serious: Yes (Hospitalization)
  Sender: FDA-Public Use
  Company Number: JP-JNJFOC-20040104653

PATIENT
  Age: 83 Year
  Sex: Female

DRUGS (7)
  1. LEVOFLOXACIN [Suspect]
     Indication: INFECTION
     Dosage: 300 MG, 1 IN 1 DAY, ORAL
     Route: 048
     Dates: start: 20031214, end: 20031216
  2. LEVOFLOXACIN [Suspect]
     Indication: PYREXIA
     Dosage: 300 MG, 1 IN 1 DAY, ORAL
     Route: 048
     Dates: start: 20031214, end: 20031216
  3. EUGLUCON (GLIBENCLAMIDE) [Suspect]
     Indication: DIABETES MELLITUS
     Dosage: ORAL
     Route: 048
  4. ALDACTONE [Concomitant]
  5. FAMOTIDINE [Concomitant]
  6. CHLORPROMAZINE HCL [Concomitant]
  7. PONTAL (MEFENAMIC ACID) [Concomitant]

REACTIONS (6)
  - ASTHENIA [None]
  - COMA [None]
  - DRUG INTERACTION [None]
  - HYPOGLYCAEMIA [None]
  - PALLOR [None]
  - RESTLESSNESS [None]
